FAERS Safety Report 7542132-5 (Version None)
Quarter: 2011Q2

REPORT INFORMATION
  Report Type: 
  Country: None (occurrence: None)
  Receive Date: 20110613
  Receipt Date: 20110603
  Transmission Date: 20111010
  Serious: Yes (Hospitalization, Other)
  Sender: FDA-Public Use
  Company Number: US-US-EMD SERONO, INC.-231640J10USA

PATIENT
  Sex: Female
  Weight: 52 kg

DRUGS (3)
  1. UNSPECIFIED MEDICATIONS [Concomitant]
  2. ANALGESIC [Concomitant]
     Indication: PREMEDICATION
  3. REBIF [Suspect]
     Indication: MULTIPLE SCLEROSIS
     Route: 058
     Dates: start: 20041007

REACTIONS (4)
  - DIABETES MELLITUS [None]
  - URINARY TRACT INFECTION [None]
  - DEVICE RELATED INFECTION [None]
  - BLOOD CHOLESTEROL INCREASED [None]
